FAERS Safety Report 23027228 (Version 3)
Quarter: 2023Q4

REPORT INFORMATION
  Report Type: Spontaneous
  Country: US (occurrence: US)
  Receive Date: 20231004
  Receipt Date: 20231114
  Transmission Date: 20240110
  Serious: No
  Sender: FDA-Public Use
  Company Number: US-PFIZER INC-202300296582

PATIENT
  Age: 9 Year
  Sex: Male

DRUGS (4)
  1. GENOTROPIN [Suspect]
     Active Substance: SOMATROPIN
     Dosage: 0.6 MG, DAILY
     Dates: start: 20230831
  2. ASPIRIN [Concomitant]
     Active Substance: ASPIRIN
     Indication: Heart disease congenital
     Dosage: 81 MG
  3. LEXAPRO [Concomitant]
     Active Substance: ESCITALOPRAM OXALATE
     Indication: Anxiety
     Dosage: 5 MG
  4. GUANFACINE [Concomitant]
     Active Substance: GUANFACINE
     Dosage: 2 MG, DAILY (HALF MILLIGRAM MORNING AND AFTERNOON AND 1 MILLIGRAM IN NIGHT)

REACTIONS (2)
  - Device leakage [Unknown]
  - Drug dose omission by device [Unknown]
